FAERS Safety Report 8931551 (Version 1)
Quarter: 2012Q4

REPORT INFORMATION
  Report Type: 
  Country: FR (occurrence: FR)
  Receive Date: 20121128
  Receipt Date: 20121128
  Transmission Date: 20130627
  Serious: Yes (Hospitalization)
  Sender: FDA-Public Use
  Company Number: FR-ASTRAZENECA-2012SE88493

PATIENT
  Age: 34 Year
  Sex: Male

DRUGS (10)
  1. INEXIUM [Suspect]
     Route: 048
  2. DIFFU K [Suspect]
     Route: 048
  3. SINGULAIR [Suspect]
  4. LAROXYL [Suspect]
     Route: 048
  5. GABAPENTINE [Suspect]
     Route: 048
  6. BACLOFEN [Suspect]
     Route: 048
  7. INNOVAIR [Suspect]
  8. DITROPAN [Suspect]
     Route: 048
  9. GUTRON [Suspect]
     Route: 048
  10. DANTRIUM [Suspect]
     Route: 048

REACTIONS (3)
  - Inappropriate antidiuretic hormone secretion [Recovered/Resolved]
  - Sepsis [Unknown]
  - Hyponatraemia [Recovered/Resolved]
